FAERS Safety Report 6223327-X (Version None)
Quarter: 2009Q2

REPORT INFORMATION
  Report Type: 
  Country: None (occurrence: None)
  Receive Date: 20090611
  Receipt Date: 20090604
  Transmission Date: 20091009
  Serious: Yes (Death, Hospitalization)
  Sender: FDA-Public Use
  Company Number: IN-ELI_LILLY_AND_COMPANY-IN200906001049

PATIENT
  Age: 25 Year
  Sex: Male
  Weight: 80 kg

DRUGS (1)
  1. XIGRIS [Suspect]
     Indication: SEPSIS
     Dosage: 9.5 ML PER HOUR ( 8 VIALS)
     Route: 065
     Dates: start: 20090602, end: 20090603

REACTIONS (2)
  - CONVULSION [None]
  - SEPTIC SHOCK [None]
